FAERS Safety Report 16849580 (Version 1)
Quarter: 2019Q4

REPORT INFORMATION
  Report Type: Spontaneous
  Country: US (occurrence: US)
  Receive Date: 20190925
  Receipt Date: 20190925
  Transmission Date: 20200122
  Serious: Yes (Other)
  Sender: FDA-Public Use
  Company Number: None

PATIENT
  Age: 54 Year
  Sex: Female
  Weight: 74.25 kg

DRUGS (2)
  1. SEASONAL ALLERGY MEDICATION [Concomitant]
     Active Substance: UNSPECIFIED INGREDIENT
  2. RELPAX [Suspect]
     Active Substance: ELETRIPTAN HYDROBROMIDE
     Indication: MIGRAINE
     Dosage: ?          QUANTITY:54 TABLET(S);?
     Route: 048
     Dates: start: 19930101

REACTIONS (1)
  - Recalled product [None]

NARRATIVE: CASE EVENT DATE: 20190801
